FAERS Safety Report 13219751 (Version 1)
Quarter: 2017Q1

REPORT INFORMATION
  Report Type: Report from Study
  Country: US (occurrence: US)
  Receive Date: 20170210
  Receipt Date: 20170210
  Transmission Date: 20170428
  Serious: Yes (Other)
  Sender: FDA-Public Use
  Company Number: PHEH2017US003715

PATIENT
  Age: 55 Year
  Sex: Female

DRUGS (2)
  1. EVEROLIMUS [Suspect]
     Active Substance: EVEROLIMUS
     Indication: NEUROENDOCRINE TUMOUR OF THE LUNG
     Dosage: 5 MG, UNK
     Route: 048
  2. EVEROLIMUS [Suspect]
     Active Substance: EVEROLIMUS
     Dosage: 10 MG, QD
     Route: 048

REACTIONS (3)
  - Blood chromogranin A increased [Unknown]
  - Neuroendocrine tumour of the lung [Unknown]
  - Malignant neoplasm progression [Unknown]
